FAERS Safety Report 10618540 (Version 1)
Quarter: 2014Q4

REPORT INFORMATION
  Report Type: Spontaneous
  Country: US (occurrence: None)
  Receive Date: 20141125
  Receipt Date: 20141125
  Transmission Date: 20150529
  Serious: Yes (Hospitalization)
  Sender: FDA-Public Use
  Company Number: US-H14001-14-01681

PATIENT
  Age: 43 Year
  Sex: Female

DRUGS (3)
  1. INFUMORPH [Suspect]
     Active Substance: MORPHINE SULFATE
     Indication: COMPLEX REGIONAL PAIN SYNDROME
     Route: 037
  2. INFUMORPH [Suspect]
     Active Substance: MORPHINE SULFATE
     Indication: SPINAL PAIN
     Route: 037
  3. INFUMORPH [Suspect]
     Active Substance: MORPHINE SULFATE
     Indication: RADICULOPATHY
     Route: 037

REACTIONS (3)
  - Sensory disturbance [None]
  - Incision site swelling [None]
  - Headache [None]

NARRATIVE: CASE EVENT DATE: 201411
